FAERS Safety Report 16455154 (Version 1)
Quarter: 2019Q2

REPORT INFORMATION
  Report Type: Spontaneous
  Country: DE (occurrence: DE)
  Receive Date: 20190619
  Receipt Date: 20190619
  Transmission Date: 20190711
  Serious: Yes (Other)
  Sender: FDA-Public Use
  Company Number: DE-ALLERGAN-1925349US

PATIENT
  Sex: Male
  Weight: 104 kg

DRUGS (2)
  1. VENLAFAXIN [Suspect]
     Active Substance: VENLAFAXINE HYDROCHLORIDE
     Indication: PRODUCT USED FOR UNKNOWN INDICATION
     Dosage: UNK
     Route: 048
     Dates: start: 20090123, end: 20090210
  2. CITALOPRAM HYDROBROMIDE - BP [Suspect]
     Active Substance: CITALOPRAM HYDROBROMIDE
     Indication: PRODUCT USED FOR UNKNOWN INDICATION
     Dosage: UNK
     Route: 048
     Dates: start: 20090210, end: 200910

REACTIONS (5)
  - Hypersensitivity [Recovered/Resolved with Sequelae]
  - Suicidal ideation [Unknown]
  - Orgasmic sensation decreased [Recovered/Resolved with Sequelae]
  - Hypoaesthesia [Recovered/Resolved with Sequelae]
  - Erectile dysfunction [Recovered/Resolved with Sequelae]

NARRATIVE: CASE EVENT DATE: 2009
